FAERS Safety Report 9017534 (Version 3)
Quarter: 2013Q2

REPORT INFORMATION
  Report Type: Not Available
  Country: FR (occurrence: FR)
  Receive Date: 20130117
  Receipt Date: 20130429
  Transmission Date: 20140414
  Serious: Yes (Hospitalization)
  Sender: FDA-Public Use
  Company Number: FR-NAPPMUNDI-GBR-2013-0012628

PATIENT
  Age: 76 Year
  Sex: Male

DRUGS (14)
  1. OXYNORM 10 MG, GELULE [Suspect]
     Indication: PAIN
     Dosage: 10 MG, PRN
     Route: 048
     Dates: start: 20120814, end: 20120911
  2. ALLOPURINOL [Suspect]
     Indication: PRODUCT USED FOR UNKNOWN INDICATION
     Dosage: 300 MG, DAILY
     Route: 048
     Dates: start: 20120814, end: 20120907
  3. ZELITREX [Suspect]
     Indication: PRODUCT USED FOR UNKNOWN INDICATION
     Dosage: 500 MG, BID
     Route: 048
     Dates: start: 20120824
  4. CONTRAMAL [Suspect]
     Indication: PRODUCT USED FOR UNKNOWN INDICATION
     Dosage: 100 MG, DAILY
     Route: 048
     Dates: start: 20120814, end: 20120911
  5. VELCADE [Concomitant]
     Dosage: 3.5 MG, UNK
     Route: 042
     Dates: start: 20120907, end: 20120907
  6. VELCADE [Concomitant]
     Dosage: 3.5 MG, UNK
     Route: 042
     Dates: start: 20120904, end: 20120904
  7. VELCADE [Concomitant]
     Dosage: 3.5 MG, UNK
     Route: 042
     Dates: start: 20120824, end: 20120824
  8. VELCADE [Concomitant]
     Dosage: 3.5 MG, UNK
     Route: 042
     Dates: start: 20120814, end: 20120814
  9. ALKERAN                            /00006401/ [Concomitant]
     Dosage: UNK
     Route: 042
     Dates: start: 20120907, end: 20120907
  10. ALKERAN                            /00006401/ [Concomitant]
     Dosage: UNK
     Route: 042
     Dates: start: 20120904, end: 20120904
  11. ALKERAN                            /00006401/ [Concomitant]
     Dosage: UNK
     Route: 042
     Dates: start: 20120824, end: 20120824
  12. ALKERAN                            /00006401/ [Concomitant]
     Dosage: UNK
     Route: 042
     Dates: start: 20120814, end: 20120814
  13. AMLOR [Concomitant]
     Indication: HYPERTENSION
     Dosage: 10 MG, DAILY
     Route: 048
     Dates: start: 20120814, end: 20120911
  14. ESIDREX [Concomitant]
     Dosage: 25 MG, DAILY
     Route: 048

REACTIONS (1)
  - Drug reaction with eosinophilia and systemic symptoms [Recovered/Resolved]
